FAERS Safety Report 9116925 (Version 1)
Quarter: 2013Q1

REPORT INFORMATION
  Report Type: Spontaneous
  Country: US (occurrence: US)
  Receive Date: 20130225
  Receipt Date: 20130225
  Transmission Date: 20140127
  Serious: Yes (Life-Threatening, Hospitalization, Disabling, Other)
  Sender: FDA-Public Use
  Company Number: US-SANOFI-AVENTIS-2010SA000585

PATIENT
  Age: 42 Year
  Sex: Male

DRUGS (11)
  1. PLAVIX [Suspect]
     Indication: ANTICOAGULANT THERAPY
     Route: 048
  2. AMBIEN [Suspect]
  3. ZOLPIDEM [Suspect]
  4. CLOPIDOGREL [Suspect]
  5. SIMVASTATIN [Concomitant]
  6. CITALOPRAM [Concomitant]
  7. AMITRIPTYLINE [Concomitant]
  8. FIORICET [Concomitant]
  9. NIACIN [Concomitant]
  10. HYDROCODONE [Concomitant]
  11. PRILOSEC [Concomitant]
     Indication: GASTRIC DISORDER

REACTIONS (10)
  - Gastric ulcer haemorrhage [Unknown]
  - Off label use [Unknown]
  - Gastrectomy [Unknown]
  - Vascular graft [Unknown]
  - Glaucoma [Unknown]
  - Cardiac operation [Unknown]
  - Stent placement [Unknown]
  - Blindness [Unknown]
  - Feeling abnormal [Unknown]
  - Asthenia [Unknown]
